FAERS Safety Report 5096377-7 (Version None)
Quarter: 2006Q3

REPORT INFORMATION
  Report Type: 
  Country: None (occurrence: None)
  Receive Date: 20060831
  Receipt Date: 20060818
  Transmission Date: 20061208
  Serious: Yes (Death)
  Sender: FDA-Public Use
  Company Number: 228961

PATIENT
  Age: 73 Year
  Sex: Male

DRUGS (3)
  1. RITUXAN [Suspect]
     Indication: CHRONIC LYMPHOCYTIC LEUKAEMIA
  2. DIPHENHYDRAMINE (DIPHENHYDRAMINE NOS) [Concomitant]
  3. ACETAMINOPHEN [Concomitant]

REACTIONS (6)
  - DRUG TOXICITY [None]
  - DYSPNOEA [None]
  - HAEMOPTYSIS [None]
  - HYPOXIA [None]
  - INFUSION RELATED REACTION [None]
  - TACHYCARDIA [None]
